FAERS Safety Report 9530239 (Version 4)
Quarter: 2014Q2

REPORT INFORMATION
  Report Type: Report from Study
  Country: US (occurrence: US)
  Receive Date: 20130917
  Receipt Date: 20140404
  Transmission Date: 20141212
  Serious: Yes (Other)
  Sender: FDA-Public Use
  Company Number: US-ROCHE-1245674

PATIENT
  Sex: Female

DRUGS (9)
  1. LUCENTIS [Suspect]
     Indication: DIABETIC RETINAL OEDEMA
     Dosage: OS #3
     Route: 050
     Dates: start: 20130909
  2. LUCENTIS [Suspect]
     Indication: VITREOUS DETACHMENT
  3. LUCENTIS [Suspect]
     Indication: DIABETIC RETINOPATHY
  4. LUCENTIS [Suspect]
     Indication: RETINAL LASER COAGULATION
  5. LUCENTIS [Suspect]
     Indication: CATARACT
  6. GLIPIZIDE [Concomitant]
     Route: 065
  7. ASPIRIN [Concomitant]
     Route: 065
  8. ASPIRIN [Concomitant]
     Route: 065
  9. METFORMIN [Concomitant]
     Route: 065

REACTIONS (5)
  - Blindness [Recovering/Resolving]
  - Photosensitivity reaction [Recovering/Resolving]
  - Altered visual depth perception [Recovering/Resolving]
  - Vitreous floaters [Recovering/Resolving]
  - Visual acuity reduced [Recovering/Resolving]
